FAERS Safety Report 11634989 (Version 1)
Quarter: 2015Q4

REPORT INFORMATION
  Report Type: Spontaneous
  Country: US (occurrence: US)
  Receive Date: 20151015
  Receipt Date: 20151015
  Transmission Date: 20160304
  Serious: No
  Sender: FDA-Public Use
  Company Number: US-SA-2014SA160684

PATIENT
  Age: 36 Year
  Sex: Female

DRUGS (2)
  1. BENADRYL [Suspect]
     Active Substance: DIPHENHYDRAMINE HYDROCHLORIDE
     Route: 065
  2. LUMIZYME [Suspect]
     Active Substance: ALGLUCOSIDASE ALFA
     Indication: GLYCOGEN STORAGE DISEASE TYPE II
     Route: 041
     Dates: start: 20141015

REACTIONS (6)
  - Headache [Unknown]
  - Muscle spasms [Unknown]
  - Dizziness [Unknown]
  - Palpitations [Unknown]
  - Anxiety [Unknown]
  - Vomiting [Unknown]

NARRATIVE: CASE EVENT DATE: 20141113
